FAERS Safety Report 24177287 (Version 1)
Quarter: 2024Q3

REPORT INFORMATION
  Report Type: Spontaneous
  Country: US (occurrence: US)
  Receive Date: 20240806
  Receipt Date: 20240806
  Transmission Date: 20241016
  Serious: No
  Sender: CHIESI
  Company Number: US-CHIESI-2023CHF06983

PATIENT
  Age: 57 Year
  Sex: Male

DRUGS (3)
  1. KENGREAL [Suspect]
     Active Substance: CANGRELOR
     Indication: Percutaneous coronary intervention
     Dosage: 30 MICROGRAM/KILOGRAM
     Route: 040
     Dates: start: 20231221, end: 20231221
  2. KENGREAL [Suspect]
     Active Substance: CANGRELOR
     Dosage: UNK
     Route: 042
     Dates: start: 20231221, end: 20231221
  3. TICAGRELOR [Concomitant]
     Active Substance: TICAGRELOR
     Indication: Product used for unknown indication
     Dosage: 180 MILLIGRAM
     Route: 048
     Dates: start: 20231221

REACTIONS (3)
  - Haematoma [Recovering/Resolving]
  - Blood pressure decreased [Recovered/Resolved]
  - Off label use [Recovered/Resolved]

NARRATIVE: CASE EVENT DATE: 20231221
